FAERS Safety Report 22078604 (Version 1)
Quarter: 2023Q1

REPORT INFORMATION
  Report Type: Spontaneous
  Country: US (occurrence: US)
  Receive Date: 20230309
  Receipt Date: 20230309
  Transmission Date: 20230418
  Serious: No
  Sender: FDA-Public Use
  Company Number: US-MYLANLABS-2023M1022883

PATIENT
  Age: 67 Year
  Sex: Female

DRUGS (1)
  1. SCOPOLAMINE [Suspect]
     Active Substance: SCOPOLAMINE
     Indication: Neoplasm malignant
     Dosage: 1 MILLIGRAM, Q3D
     Route: 062
     Dates: start: 20220905

REACTIONS (2)
  - Product use in unapproved indication [Unknown]
  - Product adhesion issue [Unknown]

NARRATIVE: CASE EVENT DATE: 20220905
